FAERS Safety Report 16361610 (Version 9)
Quarter: 2019Q4

REPORT INFORMATION
  Report Type: Spontaneous
  Country: US (occurrence: US)
  Receive Date: 20190528
  Receipt Date: 20191028
  Transmission Date: 20200122
  Serious: No
  Sender: FDA-Public Use
  Company Number: US-PFIZER INC-2019166474

PATIENT
  Age: 84 Year
  Sex: Female
  Weight: 68 kg

DRUGS (4)
  1. XELJANZ [Suspect]
     Active Substance: TOFACITINIB CITRATE
     Indication: PSORIASIS
     Dosage: 5 MG, 1X/DAY
     Dates: start: 20181219
  2. XELJANZ [Suspect]
     Active Substance: TOFACITINIB CITRATE
     Indication: SKIN MASS
     Dosage: 5 MG, 2X/DAY
  3. XELJANZ [Suspect]
     Active Substance: TOFACITINIB CITRATE
     Indication: ARTHRALGIA
  4. XELJANZ [Suspect]
     Active Substance: TOFACITINIB CITRATE
     Indication: RHEUMATOID ARTHRITIS

REACTIONS (11)
  - Pyrexia [Unknown]
  - Chills [Unknown]
  - Sinus disorder [Unknown]
  - Drug effective for unapproved indication [Unknown]
  - Sinusitis [Unknown]
  - Blood pressure increased [Unknown]
  - Abdominal discomfort [Unknown]
  - Off label use [Unknown]
  - Gastric disorder [Recovering/Resolving]
  - Flatulence [Recovered/Resolved]
  - Hypoxanthine-guanine phosphoribosyl transferase deficiency [Unknown]

NARRATIVE: CASE EVENT DATE: 20181219
